FAERS Safety Report 18561707 (Version 1)
Quarter: 2020Q4

REPORT INFORMATION
  Report Type: Spontaneous
  Country: US (occurrence: US)
  Receive Date: 20201130
  Receipt Date: 20201130
  Transmission Date: 20210114
  Serious: Yes (Death, Other)
  Sender: FDA-Public Use
  Company Number: US-PURDUE-USA-2020-0177428

PATIENT
  Age: 73 Year
  Sex: Male

DRUGS (1)
  1. OXYCONTIN [Suspect]
     Active Substance: OXYCODONE HYDROCHLORIDE
     Indication: NEUROPATHY PERIPHERAL
     Dosage: UNK
     Route: 048

REACTIONS (13)
  - Psychiatric symptom [Unknown]
  - Personality change [Unknown]
  - Mental disorder [Unknown]
  - Fall [Unknown]
  - Drug dependence [Unknown]
  - Anger [Unknown]
  - Aggression [Unknown]
  - Emotional distress [Unknown]
  - Injury [Unknown]
  - Disorganised speech [Unknown]
  - Impaired self-care [Unknown]
  - Death [Fatal]
  - Weight decreased [Unknown]

NARRATIVE: CASE EVENT DATE: 201609
